FAERS Safety Report 8180749-8 (Version None)
Quarter: 2012Q1

REPORT INFORMATION
  Report Type: 
  Country: None (occurrence: None)
  Receive Date: 20120302
  Receipt Date: 20120216
  Transmission Date: 20120608
  Serious: Yes (Death, Hospitalization)
  Sender: FDA-Public Use
  Company Number: US-ROCHE-1043571

PATIENT
  Sex: Female

DRUGS (3)
  1. KLONOPIN [Suspect]
     Indication: PRODUCT USED FOR UNKNOWN INDICATION
  2. SYNTHROID [Concomitant]
  3. CLONIDINE [Concomitant]

REACTIONS (8)
  - DEATH [None]
  - MEDICATION ERROR [None]
  - CLUMSINESS [None]
  - CEREBROVASCULAR ACCIDENT [None]
  - DRUG INTERACTION [None]
  - CONFUSIONAL STATE [None]
  - SOMNOLENCE [None]
  - IMPAIRED DRIVING ABILITY [None]
